FAERS Safety Report 7725714-7 (Version None)
Quarter: 2011Q3

REPORT INFORMATION
  Report Type: 
  Country: None (occurrence: None)
  Receive Date: 20110902
  Receipt Date: 20110823
  Transmission Date: 20111222
  Serious: Yes (Death, Hospitalization)
  Sender: FDA-Public Use
  Company Number: US-UCBSA-035828

PATIENT
  Sex: Female
  Weight: 118.2 kg

DRUGS (14)
  1. RANITIDINE [Concomitant]
     Indication: GASTROOESOPHAGEAL REFLUX DISEASE
     Route: 048
     Dates: start: 20100101, end: 20110101
  2. PREDNISONE [Concomitant]
     Indication: RHEUMATOID ARTHRITIS
     Route: 048
     Dates: start: 20100101, end: 20110101
  3. GABAPENTIN [Concomitant]
     Indication: INSOMNIA
     Dosage: 300 MG AT BEDTIME
     Route: 048
     Dates: start: 20110101, end: 20110101
  4. HYDROMORPHONE HCL [Concomitant]
     Indication: PAIN
     Route: 048
     Dates: start: 20110101, end: 20110101
  5. METFORMIN HCL [Concomitant]
     Indication: DIABETES MELLITUS
     Route: 048
     Dates: start: 20100101, end: 20110101
  6. CITALOPRAM [Concomitant]
     Indication: DEPRESSION
     Route: 048
     Dates: start: 20100101, end: 20110101
  7. DIPHENHYDRAMINE HCL [Concomitant]
     Indication: PRURITUS
     Route: 048
     Dates: start: 20100101, end: 20110101
  8. LISINOPRIL [Concomitant]
     Indication: HYPERTENSION
     Route: 048
     Dates: start: 20100101, end: 20110101
  9. CIMZIA [Suspect]
     Indication: RHEUMATOID ARTHRITIS
     Dosage: 200 MG EVERY 2 WEEKS
     Route: 058
     Dates: start: 20101124, end: 20110101
  10. TIZANIDINE HCL [Concomitant]
     Indication: MUSCLE SPASMS
     Route: 048
     Dates: start: 20100101, end: 20110101
  11. LEFLUNOMIDE [Concomitant]
     Indication: RHEUMATOID ARTHRITIS
     Route: 048
     Dates: start: 20100101, end: 20110101
  12. JANUVIA [Concomitant]
     Indication: DIABETES MELLITUS
     Route: 048
     Dates: start: 20100101, end: 20110101
  13. PROPRANOLOL [Suspect]
     Indication: TREMOR
     Dosage: STARTED AT 1 TABLET DAILY, ENDED WITH 3 TABLETS DAILY
     Route: 048
     Dates: end: 20110606
  14. ISONIAZID [Concomitant]
     Indication: PROPHYLAXIS
     Route: 048
     Dates: start: 20100101, end: 20110101

REACTIONS (3)
  - DEHYDRATION [None]
  - RHEUMATOID ARTHRITIS [None]
  - DEATH [None]
